FAERS Safety Report 24796520 (Version 1)
Quarter: 2025Q1

REPORT INFORMATION
  Report Type: Spontaneous
  Country: FR (occurrence: FR)
  Receive Date: 20250101
  Receipt Date: 20250101
  Transmission Date: 20250409
  Serious: Yes (Life-Threatening, Other)
  Sender: SANOFI AVENTIS
  Company Number: None

PATIENT
  Age: 67 Year
  Sex: Female
  Weight: 83 kg

DRUGS (5)
  1. HYDROCHLOROTHIAZIDE\IRBESARTAN [Suspect]
     Active Substance: HYDROCHLOROTHIAZIDE\IRBESARTAN
     Indication: Hypertension
     Dosage: 1 DF, QD
     Route: 048
  2. LEVOTHYROXINE SODIUM [Suspect]
     Active Substance: LEVOTHYROXINE SODIUM
     Indication: Hypothyroidism
     Dosage: 100 UG, QD
     Route: 048
  3. INFLIXIMAB [Suspect]
     Active Substance: INFLIXIMAB
     Indication: Ankylosing spondylitis
     Dosage: 120 MG, QW
     Route: 058
     Dates: start: 2022
  4. ESOMEPRAZOLE MAGNESIUM [Suspect]
     Active Substance: ESOMEPRAZOLE MAGNESIUM
     Indication: Gastritis
     Dosage: 40 MG, QD
     Route: 048
  5. LEVOCETIRIZINE DIHYDROCHLORIDE [Suspect]
     Active Substance: LEVOCETIRIZINE DIHYDROCHLORIDE
     Dosage: 5 MG, QD
     Route: 048

REACTIONS (1)
  - Ischaemic stroke [Recovered/Resolved]

NARRATIVE: CASE EVENT DATE: 20241022
